FAERS Safety Report 4782713-5 (Version None)
Quarter: 2005Q3

REPORT INFORMATION
  Report Type: 
  Country: None (occurrence: None)
  Receive Date: 20050929
  Receipt Date: 20050815
  Transmission Date: 20060218
  Serious: No
  Sender: FDA-Public Use
  Company Number: 414379

PATIENT
  Sex: Female

DRUGS (8)
  1. COREG [Suspect]
     Dosage: 6.25MG TWICE PER DAY
     Route: 048
     Dates: start: 20050801
  2. ZESTORETIC [Concomitant]
  3. POTASSIUM [Concomitant]
  4. SYNTHROID [Concomitant]
  5. LESCOL [Concomitant]
  6. COUMADIN [Concomitant]
  7. ALLOPURINOL [Concomitant]
  8. DIURETIC [Concomitant]

REACTIONS (10)
  - DIARRHOEA [None]
  - DIFFICULTY IN WALKING [None]
  - DIZZINESS [None]
  - DYSPEPSIA [None]
  - FATIGUE [None]
  - IMPAIRED DRIVING ABILITY [None]
  - LOCALISED INFECTION [None]
  - NAUSEA [None]
  - STOMACH DISCOMFORT [None]
  - WEIGHT INCREASED [None]
